FAERS Safety Report 5161823-7 (Version None)
Quarter: 2006Q4

REPORT INFORMATION
  Report Type: 
  Country: None (occurrence: None)
  Receive Date: 20061130
  Receipt Date: 20060925
  Transmission Date: 20070319
  Serious: No
  Sender: FDA-Public Use
  Company Number: US-GLAXOSMITHKLINE-A0621331A

PATIENT
  Sex: Female

DRUGS (3)
  1. WELLBUTRIN XL [Suspect]
     Indication: DEPRESSION
     Dosage: 150MG TWICE PER DAY
     Route: 048
  2. SEROQUEL [Concomitant]
  3. XANAX [Concomitant]

REACTIONS (5)
  - APATHY [None]
  - CRYING [None]
  - DEPRESSION [None]
  - INSOMNIA [None]
  - MEDICATION RESIDUE [None]
